FAERS Safety Report 17443804 (Version 8)
Quarter: 2021Q1

REPORT INFORMATION
  Report Type: Report from Study
  Country: US (occurrence: US)
  Receive Date: 20200221
  Receipt Date: 20210120
  Transmission Date: 20210419
  Serious: No
  Sender: FDA-Public Use
  Company Number: NVSC2020US048820

PATIENT
  Sex: Male

DRUGS (2)
  1. ENTRESTO [Suspect]
     Active Substance: SACUBITRIL\VALSARTAN
     Dosage: DOSE DOUBLED
     Route: 065
  2. ENTRESTO [Suspect]
     Active Substance: SACUBITRIL\VALSARTAN
     Indication: PRODUCT USED FOR UNKNOWN INDICATION
     Dosage: UNK
     Route: 065

REACTIONS (9)
  - Fatigue [Unknown]
  - Hypotension [Unknown]
  - Hypercoagulation [Unknown]
  - Weight decreased [Recovered/Resolved]
  - Limb injury [Unknown]
  - Fear of disease [Unknown]
  - International normalised ratio abnormal [Recovered/Resolved]
  - Visual impairment [Unknown]
  - Insomnia [Unknown]
